FAERS Safety Report 9993274 (Version 3)
Quarter: 2014Q2

REPORT INFORMATION
  Report Type: Spontaneous
  Country: US (occurrence: US)
  Receive Date: 20140310
  Receipt Date: 20140616
  Transmission Date: 20141212
  Serious: Yes (Hospitalization, Other)
  Sender: FDA-Public Use
  Company Number: US-ACORDA-ACO_101976_2014

PATIENT
  Age: 45 Year
  Sex: Female

DRUGS (4)
  1. AMPYRA [Suspect]
     Indication: MULTIPLE SCLEROSIS
     Dosage: 10 MG, BID
     Route: 048
     Dates: end: 20131121
  2. AMPYRA [Suspect]
     Dosage: 10 MG, TID
     Route: 048
     Dates: start: 20131122, end: 20131122
  3. GILENYA [Suspect]
     Indication: PRODUCT USED FOR UNKNOWN INDICATION
     Dosage: UNK,UNK
     Route: 065
  4. ASPIRIN [Concomitant]
     Indication: BACK PAIN
     Dosage: 2 DF, PRN
     Route: 048

REACTIONS (2)
  - Convulsion [Recovered/Resolved]
  - Incorrect dose administered [Unknown]
